FAERS Safety Report 20047253 (Version 2)
Quarter: 2021Q4

REPORT INFORMATION
  Report Type: Spontaneous
  Country: EG (occurrence: EG)
  Receive Date: 20211109
  Receipt Date: 20211117
  Transmission Date: 20220303
  Serious: Yes (Other)
  Sender: FDA-Public Use
  Company Number: EG-NOVARTISPH-NVSC2021EG237741

PATIENT
  Age: 11 Year
  Sex: Female

DRUGS (11)
  1. NEORAL [Suspect]
     Active Substance: CYCLOSPORINE
     Indication: Psoriasis
     Dosage: 3 DF, QW
     Route: 048
     Dates: start: 2019, end: 2020
  2. NEORAL [Suspect]
     Active Substance: CYCLOSPORINE
     Dosage: 2 DF, QW
     Route: 048
     Dates: end: 202003
  3. COSENTYX [Suspect]
     Active Substance: SECUKINUMAB
     Indication: Psoriasis
     Dosage: 300 MG (150 MG 2 PENS)
     Route: 065
  4. COSENTYX [Suspect]
     Active Substance: SECUKINUMAB
     Dosage: 300 MG, Q2W (EVERY 2 WEEKS)
     Route: 058
     Dates: start: 20211012
  5. METHOTREXATE [Concomitant]
     Active Substance: METHOTREXATE
     Indication: Product used for unknown indication
     Dosage: UNK UNK, QW
     Route: 065
     Dates: start: 2012, end: 2019
  6. METHOTREXATE [Concomitant]
     Active Substance: METHOTREXATE
     Dosage: 1 CM, QMO
     Route: 058
  7. METHOTREXATE [Concomitant]
     Active Substance: METHOTREXATE
     Dosage: 0.7 CM, QMO
     Route: 058
  8. METHOTREXATE [Concomitant]
     Active Substance: METHOTREXATE
     Dosage: 0.5 CM, QMO
     Route: 058
  9. FOLIC ACID [Concomitant]
     Active Substance: FOLIC ACID
     Indication: Product used for unknown indication
     Dosage: 1 DF, QD
     Route: 065
     Dates: start: 2012, end: 2019
  10. HERBALS [Concomitant]
     Active Substance: HERBALS
     Indication: Product used for unknown indication
     Dosage: 0.5 ML OF POWDER + 1 TEA SPOONFUL OF LIQUID EXTRACT ON HALF CUP OF JUICE OR MILK TWICE DAILY
     Route: 065
  11. HERBALS [Concomitant]
     Active Substance: HERBALS
     Dosage: UNK
     Route: 065
     Dates: start: 202003

REACTIONS (8)
  - Anaemia [Unknown]
  - Haemoglobin decreased [Unknown]
  - Psoriasis [Not Recovered/Not Resolved]
  - Balance disorder [Not Recovered/Not Resolved]
  - Immune system disorder [Unknown]
  - Dizziness [Not Recovered/Not Resolved]
  - Psoriasis [Recovered/Resolved]
  - Product use issue [Not Recovered/Not Resolved]

NARRATIVE: CASE EVENT DATE: 20200101
